FAERS Safety Report 4631561-5 (Version None)
Quarter: 2005Q2

REPORT INFORMATION
  Report Type: 
  Country: None (occurrence: None)
  Receive Date: 20050407
  Receipt Date: 20050325
  Transmission Date: 20051028
  Serious: Yes (Other)
  Sender: FDA-Public Use
  Company Number: 2005052339

PATIENT
  Age: 7 Year
  Sex: Male

DRUGS (6)
  1. DOXORUBICIN HCL [Suspect]
     Indication: BURKITT'S LYMPHOMA STAGE III
  2. PREDNISONE [Suspect]
     Indication: BURKITT'S LYMPHOMA STAGE III
  3. CYCLOPHOSPHAMIDE [Suspect]
     Indication: BURKITT'S LYMPHOMA STAGE III
  4. VINCRISTINE [Suspect]
     Indication: BURKITT'S LYMPHOMA STAGE III
  5. METHOTREXATE [Suspect]
     Indication: BURKITT'S LYMPHOMA STAGE III
  6. HYDROCORTISONE [Suspect]
     Indication: BURKITT'S LYMPHOMA STAGE III
     Dosage: INTRATHECAL
     Route: 037

REACTIONS (6)
  - AUTOIMMUNE THROMBOCYTOPENIA [None]
  - COMPLICATIONS OF TRANSPLANT SURGERY [None]
  - PORTAL VEIN THROMBOSIS [None]
  - POST PROCEDURAL COMPLICATION [None]
  - SPLENOMEGALY [None]
  - VARICES OESOPHAGEAL [None]
